FAERS Safety Report 20081604 (Version 1)
Quarter: 2021Q4

REPORT INFORMATION
  Report Type: Spontaneous
  Country: US (occurrence: US)
  Receive Date: 20211117
  Receipt Date: 20211117
  Transmission Date: 20220303
  Serious: Yes (Hospitalization)
  Sender: FDA-Public Use
  Company Number: US-MYLANLABS-2021M1084501

PATIENT
  Sex: Female

DRUGS (1)
  1. RUFINAMIDE [Suspect]
     Active Substance: RUFINAMIDE
     Indication: Epilepsy
     Dosage: UNK

REACTIONS (8)
  - Malaise [Unknown]
  - Neck pain [Unknown]
  - Dyspnoea exertional [Unknown]
  - Skin warm [Unknown]
  - Pyrexia [Unknown]
  - Rash erythematous [Unknown]
  - Lymphadenopathy [Unknown]
  - Product substitution issue [Unknown]

NARRATIVE: CASE EVENT DATE: 20210928
